FAERS Safety Report 5619268-9 (Version None)
Quarter: 2008Q1

REPORT INFORMATION
  Report Type: 
  Country: None (occurrence: None)
  Receive Date: 20080205
  Receipt Date: 20080123
  Transmission Date: 20080703
  Serious: Yes (Hospitalization)
  Sender: FDA-Public Use
  Company Number: S08-ITA-00121-01

PATIENT
  Age: 89 Year
  Sex: Female

DRUGS (4)
  1. ENTACT ORAL DROPS (ESCITALOPRAM DROPS) [Suspect]
     Indication: INSOMNIA
     Dosage: 5 DROPS QD PO
     Route: 048
     Dates: start: 20070101
  2. HALOPERIDOL (MEPROBAMATE) [Concomitant]
  3. PROMAZINE HYDROCHLORIDE [Concomitant]
  4. PREGABALIN [Concomitant]

REACTIONS (3)
  - ANAEMIA [None]
  - HAEMATEMESIS [None]
  - MELAENA [None]
